FAERS Safety Report 17659710 (Version 4)
Quarter: 2020Q2

REPORT INFORMATION
  Report Type: Report from Study
  Country: CO (occurrence: CO)
  Receive Date: 20200413
  Receipt Date: 20200602
  Transmission Date: 20200713
  Serious: Yes (Other)
  Sender: FDA-Public Use
  Company Number: NVSC2020CO097398

PATIENT
  Sex: Female
  Weight: 52 kg

DRUGS (1)
  1. AFINITOR [Suspect]
     Active Substance: EVEROLIMUS
     Indication: RENAL CELL CARCINOMA
     Dosage: 10 MG, QD
     Route: 048
     Dates: start: 20170601, end: 202003

REACTIONS (9)
  - Abdominal distension [Unknown]
  - Drug ineffective [Unknown]
  - Haemoglobin decreased [Unknown]
  - Transaminases increased [Unknown]
  - Choking [Unknown]
  - Hepatitis [Unknown]
  - Endometrial thickening [Unknown]
  - Pelvic pain [Unknown]
  - Fatigue [Unknown]
